FAERS Safety Report 10216434 (Version 1)
Quarter: 2014Q2

REPORT INFORMATION
  Report Type: Spontaneous
  Country: US (occurrence: US)
  Receive Date: 20140604
  Receipt Date: 20140604
  Transmission Date: 20141212
  Serious: No
  Sender: FDA-Public Use
  Company Number: US-BAYER-2014-083266

PATIENT
  Age: 77 Year
  Sex: Female

DRUGS (3)
  1. ALEVE CAPLET [Suspect]
     Indication: ARTHRALGIA
     Route: 048
  2. COQ10 [Concomitant]
  3. VITAMIN D [Concomitant]

REACTIONS (1)
  - Medication error [Unknown]
